FAERS Safety Report 5035225-8 (Version None)
Quarter: 2006Q2

REPORT INFORMATION
  Report Type: 
  Country: None (occurrence: None)
  Receive Date: 20060622
  Receipt Date: 20060622
  Transmission Date: 20061013
  Serious: Yes (Hospitalization)
  Sender: FDA-Public Use
  Company Number: None

PATIENT
  Age: 63 Year
  Sex: Male
  Weight: 130.1823 kg

DRUGS (9)
  1. LITHIUM  300 MG [Suspect]
     Indication: AFFECTIVE DISORDER
     Dosage: 600 MG BID PO
     Route: 048
     Dates: start: 19950101, end: 20060612
  2. FUROSEMIDE [Concomitant]
  3. FELODIPINE [Concomitant]
  4. GLYBURIDE [Concomitant]
  5. LISINOPRIL [Concomitant]
  6. METFORMIN [Concomitant]
  7. HYDROCORTISONE ACETATE [Concomitant]
  8. LITHIUM CARBONATE [Concomitant]
  9. LORAZEPAM [Concomitant]

REACTIONS (14)
  - BRADYCARDIA [None]
  - COGWHEEL RIGIDITY [None]
  - DIPLOPIA [None]
  - DRUG INEFFECTIVE [None]
  - IMPAIRED DRIVING ABILITY [None]
  - INTENTION TREMOR [None]
  - MUSCLE CONTRACTIONS INVOLUNTARY [None]
  - NYSTAGMUS [None]
  - THERAPEUTIC AGENT TOXICITY [None]
  - TREMOR [None]
  - VERTIGO POSITIONAL [None]
  - VISUAL FIELD DEFECT [None]
  - VOMITING [None]
  - WALKING AID USER [None]
